FAERS Safety Report 5505072-9 (Version None)
Quarter: 2007Q4

REPORT INFORMATION
  Report Type: 
  Country: None (occurrence: None)
  Receive Date: 20071031
  Receipt Date: 20071031
  Transmission Date: 20080405
  Serious: No
  Sender: FDA-Public Use
  Company Number: None

PATIENT
  Sex: Female
  Weight: 57.1532 kg

DRUGS (2)
  1. PROZAC [Suspect]
     Indication: DEPRESSION
     Dosage: 40 MG  DAILY  PO
     Route: 048
     Dates: start: 20070820, end: 20070928
  2. ZOLOFT [Suspect]
     Indication: DEPRESSION
     Dosage: 25MGX7,  50MG X7,  THEN 75 MG    DAILY  PO
     Route: 048
     Dates: start: 20071012, end: 20071024

REACTIONS (2)
  - AKATHISIA [None]
  - MUSCLE TWITCHING [None]
